FAERS Safety Report 14685642 (Version 1)
Quarter: 2018Q1

REPORT INFORMATION
  Report Type: Spontaneous
  Country: US (occurrence: US)
  Receive Date: 20180327
  Receipt Date: 20180327
  Transmission Date: 20180509
  Serious: No
  Sender: FDA-Public Use
  Company Number: None

PATIENT
  Age: 4 Month
  Sex: Female
  Weight: 67.13 kg

DRUGS (15)
  1. CENTRUM [Concomitant]
     Active Substance: VITAMINS
  2. ATORVASTATIN [Concomitant]
     Active Substance: ATORVASTATIN
  3. ASPIRIN LOW DOSE [Concomitant]
     Active Substance: ASPIRIN
  4. CELEBREX [Concomitant]
     Active Substance: CELECOXIB
  5. FOSAMAX [Concomitant]
     Active Substance: ALENDRONATE SODIUM
  6. ALLERGY RELIEF (FLUTICASONE) [Concomitant]
  7. HYDROCHLOROTHIAZIDE. [Concomitant]
     Active Substance: HYDROCHLOROTHIAZIDE
  8. MELATONIN [Concomitant]
     Active Substance: MELATONIN
  9. ALENDRONATE SODIUM. [Suspect]
     Active Substance: ALENDRONATE SODIUM
     Indication: OSTEOPOROSIS
     Route: 048
     Dates: start: 20171122
  10. XANAX [Concomitant]
     Active Substance: ALPRAZOLAM
  11. ALENDRONATE [Concomitant]
     Active Substance: ALENDRONATE SODIUM
  12. MIRALAX [Concomitant]
     Active Substance: POLYETHYLENE GLYCOL 3350
  13. CALTRATE W/VIT. D [Concomitant]
  14. LEVOTHYROXINE. [Concomitant]
     Active Substance: LEVOTHYROXINE
  15. ACETAMINOPHEN. [Concomitant]
     Active Substance: ACETAMINOPHEN

REACTIONS (3)
  - Deafness [None]
  - Tinnitus [None]
  - Eustachian tube dysfunction [None]

NARRATIVE: CASE EVENT DATE: 20180213
